FAERS Safety Report 19073679 (Version 1)
Quarter: 2021Q1

REPORT INFORMATION
  Report Type: Spontaneous
  Country: US (occurrence: US)
  Receive Date: 20210330
  Receipt Date: 20210330
  Transmission Date: 20210420
  Serious: No
  Sender: FDA-Public Use
  Company Number: US-TAKEDA-2021TUS020309

PATIENT
  Sex: Female
  Weight: 58.96 kg

DRUGS (38)
  1. MONTELUKAST [Concomitant]
     Active Substance: MONTELUKAST SODIUM
  2. HYOSCYAMINE. [Concomitant]
     Active Substance: HYOSCYAMINE
  3. CLOBETASOL [Concomitant]
     Active Substance: CLOBETASOL
  4. IBUPROFEN. [Concomitant]
     Active Substance: IBUPROFEN
  5. DIPHENHYDRAMINE. [Concomitant]
     Active Substance: DIPHENHYDRAMINE
  6. BACLOFEN. [Concomitant]
     Active Substance: BACLOFEN
  7. COMPAZINE [Concomitant]
     Active Substance: PROCHLORPERAZINE MALEATE
  8. MIRALAX [Concomitant]
     Active Substance: POLYETHYLENE GLYCOL 3350
  9. GABAPENTIN. [Concomitant]
     Active Substance: GABAPENTIN
  10. SENNA [Concomitant]
     Active Substance: SENNA LEAF\SENNOSIDES\SENNOSIDES A AND B
  11. MOTEGRITY [Concomitant]
     Active Substance: PRUCALOPRIDE SUCCINATE
  12. MELATONIN [Concomitant]
     Active Substance: MELATONIN
  13. FAMOTIDINE. [Concomitant]
     Active Substance: FAMOTIDINE
  14. INTRALIPID [Concomitant]
     Active Substance: EGG PHOSPHOLIPIDS\GLYCERIN\SOYBEAN OIL
  15. FERROUS SULFATE. [Concomitant]
     Active Substance: FERROUS SULFATE
  16. MELOXICAM. [Concomitant]
     Active Substance: MELOXICAM
  17. LIDOCAINE. [Concomitant]
     Active Substance: LIDOCAINE
  18. VYVANSE [Concomitant]
     Active Substance: LISDEXAMFETAMINE DIMESYLATE
  19. FLUTICASONE. [Concomitant]
     Active Substance: FLUTICASONE
  20. TROMETHAMINE. [Concomitant]
     Active Substance: TROMETHAMINE
  21. GAMMAGARD LIQUID [Suspect]
     Active Substance: HUMAN IMMUNOGLOBULIN G
     Indication: PRODUCT USED FOR UNKNOWN INDICATION
     Dosage: UNK
     Route: 065
  22. MAXALT [Concomitant]
     Active Substance: RIZATRIPTAN BENZOATE
  23. CYCLOBENZAPRINE. [Concomitant]
     Active Substance: CYCLOBENZAPRINE
  24. VITAMIN D2 [Concomitant]
     Active Substance: ERGOCALCIFEROL
  25. DICLOFENAC [Concomitant]
     Active Substance: DICLOFENAC
  26. DULCOLAX NOS [Concomitant]
     Active Substance: BISACODYL OR DOCUSATE SODIUM
  27. ASPIRIN (E.C.) [Concomitant]
     Active Substance: ASPIRIN
  28. FEXOFENADINE [Concomitant]
     Active Substance: FEXOFENADINE HYDROCHLORIDE
  29. TIZANIDINE. [Concomitant]
     Active Substance: TIZANIDINE
  30. ENOXAPARIN [Concomitant]
     Active Substance: ENOXAPARIN
  31. PHENERGAN [Concomitant]
     Active Substance: PROMETHAZINE HYDROCHLORIDE
  32. ACETAMINOPHEN. [Concomitant]
     Active Substance: ACETAMINOPHEN
  33. LORAZEPAM. [Concomitant]
     Active Substance: LORAZEPAM
  34. CROMOLYN [CROMOGLICATE SODIUM] [Concomitant]
     Active Substance: CROMOLYN SODIUM
  35. TUMS [Concomitant]
     Active Substance: CALCIUM CARBONATE
  36. DICYCLOMINE [Concomitant]
     Active Substance: DICYCLOMINE HYDROCHLORIDE
  37. ONDANSETRON [Concomitant]
     Active Substance: ONDANSETRON
  38. KETOROLAC [Concomitant]
     Active Substance: KETOROLAC TROMETHAMINE

REACTIONS (5)
  - Headache [Unknown]
  - Neck pain [Unknown]
  - Photophobia [Unknown]
  - Nausea [Unknown]
  - Vomiting [Unknown]
